FAERS Safety Report 5852120-2 (Version None)
Quarter: 2008Q3

REPORT INFORMATION
  Report Type: 
  Country: None (occurrence: None)
  Receive Date: 20080819
  Receipt Date: 20080725
  Transmission Date: 20090109
  Serious: Yes (Hospitalization)
  Sender: FDA-Public Use
  Company Number: 14968

PATIENT
  Age: 47 Year
  Sex: Female
  Weight: 136.0791 kg

DRUGS (7)
  1. MORPHINE SULFATE [Suspect]
     Indication: BACK PAIN
     Dosage: 60 MG BID ORALLY
     Route: 048
     Dates: start: 20080515, end: 20080524
  2. NITROGLYCERIN 0.4 MG PRN [Concomitant]
  3. LEVOXYL 200 MCG QD [Concomitant]
  4. NORVASC [Concomitant]
  5. ISOSORBIDE [Concomitant]
  6. LASIX 40 MG PRN [Concomitant]
  7. POTASSIUM 20 MG PRN [Concomitant]

REACTIONS (5)
  - DEHYDRATION [None]
  - NAUSEA [None]
  - PHARMACEUTICAL PRODUCT COMPLAINT [None]
  - PRURITUS GENERALISED [None]
  - VOMITING [None]
